FAERS Safety Report 5199043-2 (Version None)
Quarter: 2006Q4

REPORT INFORMATION
  Report Type: 
  Country: None (occurrence: None)
  Receive Date: 20060919
  Receipt Date: 20050801
  Transmission Date: 20070319
  Serious: Yes (Other)
  Sender: FDA-Public Use
  Company Number: HQWYE691904AUG05

PATIENT
  Age: 48 Year
  Sex: Female
  Weight: 154.36 kg

DRUGS (7)
  1. ADVIL [Suspect]
     Indication: PAIN
     Dosage: 3 CAPSULE 1X PER 1 DAY, ORAL
     Route: 048
     Dates: start: 20011101
  2. ALLOPURINOL [Concomitant]
  3. LOPRESSOR [Concomitant]
  4. LANTUS [Concomitant]
  5. VASOTEC [Concomitant]
  6. BUMEX [Concomitant]
  7. GLUCOTROL [Concomitant]

REACTIONS (2)
  - HYPOAESTHESIA ORAL [None]
  - PHARYNGEAL HYPOAESTHESIA [None]
